FAERS Safety Report 19306523 (Version 2)
Quarter: 2022Q1

REPORT INFORMATION
  Report Type: Spontaneous
  Country: US (occurrence: US)
  Receive Date: 20210526
  Receipt Date: 20220131
  Transmission Date: 20220423
  Serious: Yes (Hospitalization)
  Sender: FDA-Public Use
  Company Number: US-LUPIN PHARMACEUTICALS INC.-2021-07885

PATIENT
  Sex: Male

DRUGS (42)
  1. MORPHINE [Suspect]
     Active Substance: MORPHINE
     Indication: SUNCT syndrome
     Dosage: UNK
     Route: 065
  2. GABAPENTIN [Suspect]
     Active Substance: GABAPENTIN
     Indication: SUNCT syndrome
     Dosage: UNK
     Route: 065
  3. DICLOFENAC [Suspect]
     Active Substance: DICLOFENAC
     Indication: SUNCT syndrome
     Dosage: UNK
     Route: 065
  4. CELECOXIB [Suspect]
     Active Substance: CELECOXIB
     Indication: SUNCT syndrome
     Dosage: UNK
     Route: 065
  5. OXYCODONE [Suspect]
     Active Substance: OXYCODONE
     Indication: SUNCT syndrome
     Dosage: UNK (OXYCONTIN)
     Route: 065
  6. OXYCODONE [Suspect]
     Active Substance: OXYCODONE
     Dosage: 2 DOSAGE FORM, QD (OXYCODONE 15MG TABLET)
     Route: 065
  7. LAMOTRIGINE [Suspect]
     Active Substance: LAMOTRIGINE
     Indication: SUNCT syndrome
     Dosage: UNK
     Route: 065
  8. ESCITALOPRAM [Suspect]
     Active Substance: ESCITALOPRAM OXALATE
     Indication: SUNCT syndrome
     Dosage: UNK
     Route: 065
  9. SUMATRIPTAN [Suspect]
     Active Substance: SUMATRIPTAN
     Indication: SUNCT syndrome
     Dosage: UNK
     Route: 065
  10. LORAZEPAM [Suspect]
     Active Substance: LORAZEPAM
     Indication: SUNCT syndrome
     Dosage: UNK
     Route: 065
  11. QUETIAPINE FUMARATE [Suspect]
     Active Substance: QUETIAPINE FUMARATE
     Indication: SUNCT syndrome
     Dosage: UNK
     Route: 065
  12. ZOLMITRIPTAN [Suspect]
     Active Substance: ZOLMITRIPTAN
     Indication: SUNCT syndrome
     Dosage: UNK
     Route: 065
  13. ELETRIPTAN HYDROBROMIDE [Suspect]
     Active Substance: ELETRIPTAN HYDROBROMIDE
     Indication: SUNCT syndrome
     Dosage: UNK
     Route: 065
  14. TOPIRAMATE [Suspect]
     Active Substance: TOPIRAMATE
     Indication: SUNCT syndrome
     Dosage: UNK
     Route: 065
  15. PROPRANOLOL [Suspect]
     Active Substance: PROPRANOLOL HYDROCHLORIDE
     Indication: SUNCT syndrome
     Dosage: UNK
     Route: 065
  16. PREGABALIN [Suspect]
     Active Substance: PREGABALIN
     Indication: SUNCT syndrome
     Dosage: UNK
     Route: 065
  17. LACOSAMIDE [Suspect]
     Active Substance: LACOSAMIDE
     Indication: SUNCT syndrome
     Dosage: UNK
     Route: 065
  18. OXYMORPHONE [Suspect]
     Active Substance: OXYMORPHONE
     Indication: SUNCT syndrome
     Dosage: UNK
     Route: 065
  19. LITHIUM [Suspect]
     Active Substance: LITHIUM
     Indication: SUNCT syndrome
     Dosage: UNK
     Route: 065
  20. AMITRIPTYLINE [Suspect]
     Active Substance: AMITRIPTYLINE
     Indication: SUNCT syndrome
     Dosage: UNK
     Route: 065
  21. OXCARBAZEPINE [Suspect]
     Active Substance: OXCARBAZEPINE
     Indication: SUNCT syndrome
     Dosage: UNK
     Route: 065
  22. PREDNISONE [Suspect]
     Active Substance: PREDNISONE
     Indication: SUNCT syndrome
     Dosage: UNK
     Route: 065
  23. MELATONIN [Suspect]
     Active Substance: MELATONIN
     Indication: SUNCT syndrome
     Dosage: UNK
     Route: 065
  24. LIDOCAINE [Suspect]
     Active Substance: LIDOCAINE
     Indication: SUNCT syndrome
     Dosage: UNK
     Route: 042
  25. BACLOFEN [Suspect]
     Active Substance: BACLOFEN
     Indication: SUNCT syndrome
     Dosage: UNK
     Route: 065
  26. MAGNESIUM [Suspect]
     Active Substance: MAGNESIUM
     Indication: SUNCT syndrome
     Dosage: UNK
     Route: 065
  27. CARBAMAZEPINE [Suspect]
     Active Substance: CARBAMAZEPINE
     Indication: SUNCT syndrome
     Dosage: UNK
     Route: 065
  28. MYOBLOC [Suspect]
     Active Substance: RIMABOTULINUMTOXINB
     Indication: SUNCT syndrome
     Dosage: UNK
     Route: 065
  29. VERAPAMIL [Suspect]
     Active Substance: VERAPAMIL HYDROCHLORIDE
     Indication: SUNCT syndrome
     Dosage: UNK
     Route: 065
  30. INDOMETHACIN [Suspect]
     Active Substance: INDOMETHACIN
     Indication: SUNCT syndrome
     Dosage: UNK
     Route: 065
  31. DEXAMETHASONE [Suspect]
     Active Substance: DEXAMETHASONE
     Indication: SUNCT syndrome
     Dosage: UNK
     Route: 065
  32. VALPROIC ACID [Suspect]
     Active Substance: VALPROIC ACID
     Indication: SUNCT syndrome
     Dosage: UNK
     Route: 065
  33. PROCHLORPERAZINE [Suspect]
     Active Substance: PROCHLORPERAZINE
     Indication: SUNCT syndrome
     Dosage: UNK
     Route: 065
  34. ONDANSETRON [Suspect]
     Active Substance: ONDANSETRON
     Indication: SUNCT syndrome
     Dosage: UNK
     Route: 065
  35. KETAMINE [Suspect]
     Active Substance: KETAMINE
     Indication: SUNCT syndrome
     Dosage: UNK
     Route: 065
  36. CLOMIPHENE [Suspect]
     Active Substance: CLOMIPHENE
     Indication: SUNCT syndrome
     Dosage: UNK
     Route: 065
  37. BOTOX [Suspect]
     Active Substance: ONABOTULINUMTOXINA
     Indication: SUNCT syndrome
     Dosage: UNK
     Route: 065
  38. ZONISAMIDE [Suspect]
     Active Substance: ZONISAMIDE
     Indication: SUNCT syndrome
     Dosage: UNK
     Route: 065
  39. HYDROCHLOROTHIAZIDE [Suspect]
     Active Substance: HYDROCHLOROTHIAZIDE
     Indication: SUNCT syndrome
     Dosage: UNK
     Route: 065
  40. DIHYDROERGOTAMINE [Suspect]
     Active Substance: DIHYDROERGOTAMINE
     Indication: SUNCT syndrome
     Dosage: UNK
     Route: 065
  41. DIAZEPAM [Suspect]
     Active Substance: DIAZEPAM
     Indication: SUNCT syndrome
     Dosage: UNK
     Route: 065
  42. PROPOXYPHENE HYDROCHLORIDE [Suspect]
     Active Substance: PROPOXYPHENE HYDROCHLORIDE
     Indication: SUNCT syndrome
     Dosage: UNK
     Route: 065

REACTIONS (3)
  - Drug ineffective [Unknown]
  - Drug ineffective for unapproved indication [Unknown]
  - Off label use [Unknown]
